FAERS Safety Report 10019004 (Version 2)
Quarter: 2014Q1

REPORT INFORMATION
  Report Type: Report from Study
  Country: BR (occurrence: BR)
  Receive Date: 20140318
  Receipt Date: 20140318
  Transmission Date: 20141002
  Serious: Yes (Other)
  Sender: FDA-Public Use
  Company Number: PHHY2014BR016019

PATIENT
  Sex: Male
  Weight: 55 kg

DRUGS (5)
  1. ENABLEX [Suspect]
     Indication: URINARY INCONTINENCE
     Dosage: 1 DF, DAILY
     Route: 048
  2. BACTRIM [Concomitant]
     Indication: URINARY TRACT INFECTION
     Dosage: 250 MG, UNK
  3. MACRODANTIN [Concomitant]
     Indication: KIDNEY INFECTION
     Dosage: 100 MG, UNK
  4. ANADOR                                  /BRA/ [Concomitant]
     Indication: HEADACHE
     Dosage: UNK UKN, UNK
  5. DIPYRONE [Concomitant]
     Indication: HEADACHE
     Dosage: UNK UKN, UNK

REACTIONS (2)
  - Bladder disorder [Unknown]
  - Pollakiuria [Recovered/Resolved]
